FAERS Safety Report 5983640-8 (Version None)
Quarter: 2008Q4

REPORT INFORMATION
  Report Type: 
  Country: None (occurrence: None)
  Receive Date: 20081208
  Receipt Date: 20081126
  Transmission Date: 20090506
  Serious: Yes (Disabling)
  Sender: FDA-Public Use
  Company Number: US-MERCK-0805USA00698

PATIENT
  Age: 70 Year
  Sex: Female
  Weight: 62 kg

DRUGS (2)
  1. FOSAMAX [Suspect]
     Indication: OSTEOPOROSIS
     Route: 048
     Dates: start: 20030218, end: 20060209
  2. [THERAPY UNSPECIFIED] [Concomitant]
     Indication: HYPERTENSION
     Route: 065
     Dates: start: 19980101

REACTIONS (16)
  - BLOOD POTASSIUM DECREASED [None]
  - CONJUNCTIVITIS [None]
  - COUGH [None]
  - DIZZINESS [None]
  - DRY MOUTH [None]
  - HYPERCALCAEMIA [None]
  - IMPAIRED HEALING [None]
  - JAW DISORDER [None]
  - NASAL CONGESTION [None]
  - OROPHARYNGEAL PAIN [None]
  - OSTEONECROSIS [None]
  - PAIN IN JAW [None]
  - SINUSITIS [None]
  - SJOGREN'S SYNDROME [None]
  - STOMATITIS [None]
  - VIRAL UPPER RESPIRATORY TRACT INFECTION [None]
